FAERS Safety Report 7403348-1 (Version None)
Quarter: 2011Q2

REPORT INFORMATION
  Report Type: 
  Country: None (occurrence: None)
  Receive Date: 20110408
  Receipt Date: 20110401
  Transmission Date: 20111010
  Serious: Yes (Hospitalization)
  Sender: FDA-Public Use
  Company Number: A0773271A

PATIENT
  Age: 59 Year
  Sex: Male
  Weight: 78.2 kg

DRUGS (2)
  1. AVANDIA [Suspect]
     Dosage: 4MG SEE DOSAGE TEXT
     Route: 048
     Dates: start: 19990818, end: 20060630
  2. AVANDARYL [Suspect]
     Dosage: 4MG PER DAY
     Route: 048
     Dates: start: 20060701, end: 20070801

REACTIONS (3)
  - CORONARY ARTERY DISEASE [None]
  - CHEST PAIN [None]
  - MYOCARDIAL INFARCTION [None]
